FAERS Safety Report 10174720 (Version 2)
Quarter: 2014Q2

REPORT INFORMATION
  Report Type: Report from Study
  Country: DE (occurrence: DE)
  Receive Date: 20140515
  Receipt Date: 20140610
  Transmission Date: 20141212
  Serious: Yes (Hospitalization)
  Sender: FDA-Public Use
  Company Number: DE-PFIZER INC-2014129248

PATIENT
  Age: 70 Year
  Sex: Female
  Weight: 67.6 kg

DRUGS (12)
  1. EXEMESTANE [Suspect]
     Indication: BREAST CANCER
     Dosage: 25 MG, DAILY
     Dates: start: 20140408, end: 20140504
  2. EXEMESTANE [Suspect]
     Dosage: 25 MG, DAILY
     Dates: start: 20140507, end: 20140530
  3. AFINITOR [Suspect]
     Indication: BREAST CANCER
     Dosage: 10 MG, DAILY
     Dates: start: 20140408, end: 20140504
  4. AFINITOR [Suspect]
     Dosage: 10 MG, DAILY
     Dates: start: 20140507, end: 20140530
  5. LETROZOLE [Concomitant]
     Dosage: UNK
     Dates: start: 20131217
  6. ANASTROZOLE [Concomitant]
     Dosage: UNK
     Dates: start: 20131217
  7. ASS [Concomitant]
     Dosage: 100 MG, 1X/DAY
     Route: 048
     Dates: start: 20000115
  8. RAMIPRIL BETA COMP [Concomitant]
     Dosage: 5/25 MG, 1X/DAY
     Route: 048
     Dates: start: 20000115
  9. SIMVASTATIN [Concomitant]
     Dosage: 10 MG, 1X/DAY
     Route: 048
     Dates: start: 20010115
  10. KALINOR RETARD [Concomitant]
     Dosage: DAILY
     Dates: start: 20130227
  11. DORZOLAMID AL COMP [Concomitant]
     Dosage: 20/5 MG, UNK
     Dates: start: 20120415
  12. LUMIGAN [Concomitant]
     Dosage: 0.3 MG, 1X/DAY
     Dates: start: 20120415

REACTIONS (1)
  - Stomatitis [Recovering/Resolving]
